FAERS Safety Report 8201840-3 (Version None)
Quarter: 2012Q1

REPORT INFORMATION
  Report Type: 
  Country: None (occurrence: None)
  Receive Date: 20120312
  Receipt Date: 20120307
  Transmission Date: 20120608
  Serious: Yes (Death)
  Sender: FDA-Public Use
  Company Number: FR-JNJFOC-20120303755

PATIENT
  Age: 83 Year
  Sex: Male

DRUGS (3)
  1. ZYTIGA [Suspect]
     Indication: PROSTATE CANCER
     Route: 048
  2. PREDNISONE TAB [Concomitant]
     Indication: PROSTATE CANCER
     Route: 065
  3. ANTI-DIABETIC DRUGS [Concomitant]
     Indication: DIABETES MELLITUS
     Route: 065

REACTIONS (1)
  - CARDIAC ARREST [None]
